FAERS Safety Report 6724234-6 (Version None)
Quarter: 2010Q2

REPORT INFORMATION
  Report Type: 
  Country: None (occurrence: None)
  Receive Date: 20100513
  Receipt Date: 20100512
  Transmission Date: 20101027
  Serious: No
  Sender: FDA-Public Use
  Company Number: US-JNJFOC-20100405762

PATIENT
  Sex: Female
  Weight: 55.79 kg

DRUGS (5)
  1. FENTANYL CITRATE [Suspect]
     Indication: HEADACHE
     Dosage: TWO 12.5 UG/HR PATCHES
     Route: 062
  2. FENTANYL CITRATE [Suspect]
     Route: 062
  3. FENTANYL CITRATE [Suspect]
     Indication: EYE PAIN
     Route: 062
  4. FENTANYL CITRATE [Suspect]
     Dosage: TWO 12.5 UG/HR PATCHES
     Route: 062
  5. DILAUDID [Suspect]
     Indication: PAIN
     Dosage: ONE TIME ONLY
     Route: 030

REACTIONS (7)
  - ANXIETY [None]
  - DRUG HYPERSENSITIVITY [None]
  - DRUG INEFFECTIVE [None]
  - DRUG PRESCRIBING ERROR [None]
  - FEELING OF BODY TEMPERATURE CHANGE [None]
  - RESTLESSNESS [None]
  - SCREAMING [None]
